FAERS Safety Report 17170186 (Version 2)
Quarter: 2020Q1

REPORT INFORMATION
  Report Type: Spontaneous
  Country: FR (occurrence: FR)
  Receive Date: 20191218
  Receipt Date: 20200106
  Transmission Date: 20200409
  Serious: Yes (Death, Life-Threatening, Hospitalization)
  Sender: FDA-Public Use
  Company Number: FR-PFIZER INC-2019542900

PATIENT
  Age: 79 Year
  Sex: Male
  Weight: 65 kg

DRUGS (4)
  1. VYNDAQEL [Suspect]
     Active Substance: TAFAMIDIS MEGLUMINE
     Indication: AMYLOIDOSIS
     Dosage: 20 MG, 1X/DAY
  2. LASILIX [FUROSEMIDE] [Concomitant]
     Active Substance: FUROSEMIDE
     Dosage: 40, 1X/DAY
  3. AMIODARONE [Concomitant]
     Active Substance: AMIODARONE
     Indication: ARRHYTHMIA
     Dosage: 200, 1X/DAY
  4. RAMIPRIL. [Concomitant]
     Active Substance: RAMIPRIL
     Indication: ARRHYTHMIA
     Dosage: 1.25, 1X/DAY

REACTIONS (5)
  - Cardiac arrest [Fatal]
  - Atrial fibrillation [Fatal]
  - Multiple organ dysfunction syndrome [Not Recovered/Not Resolved]
  - Product use in unapproved indication [Unknown]
  - Off label use [Unknown]

NARRATIVE: CASE EVENT DATE: 20191103
